FAERS Safety Report 7819055-7 (Version None)
Quarter: 2011Q4

REPORT INFORMATION
  Report Type: 
  Country: None (occurrence: None)
  Receive Date: 20111012
  Receipt Date: 20110929
  Transmission Date: 20120403
  Serious: Yes (Other)
  Sender: FDA-Public Use
  Company Number: 1000021699

PATIENT
  Age: 75 Year
  Sex: Female

DRUGS (13)
  1. ASPIRIN [Concomitant]
  2. TILDIEM (DILTIAZEM HYDROCHLORIDE) (DILTIAZEM HYDROCHLORIDE) [Concomitant]
  3. OMEPRAZOLE [Concomitant]
  4. TRAMADOL HCL [Concomitant]
  5. RISEDRONATE (RISEDRONIC ACID) (RISEDRONIC ACID) [Concomitant]
  6. LEVOTHYROXINE SODIUM (LEVOTHYROXINE SODIUM) (LEVOTHYROXINE SODIUM) [Concomitant]
  7. NICORANDIL (NICORANDIL) (NICORANDIL) [Concomitant]
  8. PENTASA (MESALAZINE) (MESALAZINE) [Concomitant]
  9. PROCHLORPERAZINE (PROCHLORPERAZINE) (PROCHLORPERAZINE) [Concomitant]
  10. CEFRADINE (CEFRADINE) (CEFRADINE) [Concomitant]
  11. ROSUVASTATIN [Concomitant]
  12. FERSAMAL (FERROUS FUMARATE) (FERROUS FUMARATE) [Concomitant]
  13. MEMANTINE [Suspect]
     Indication: DEMENTIA
     Dates: end: 20110526

REACTIONS (4)
  - AGITATION [None]
  - JAUNDICE [None]
  - VOMITING [None]
  - CHEST PAIN [None]
